FAERS Safety Report 9068504 (Version 1)
Quarter: 2013Q1

REPORT INFORMATION
  Report Type: Spontaneous
  Country: US (occurrence: None)
  Receive Date: 20130212
  Receipt Date: 20130212
  Transmission Date: 20140127
  Serious: Yes (Life-Threatening, Hospitalization, Disabling, Other)
  Sender: FDA-Public Use
  Company Number: None

PATIENT
  Age: 35 Year
  Sex: Male
  Weight: 70 kg

DRUGS (1)
  1. CHANTIX [Suspect]
     Indication: SMOKING CESSATION THERAPY
     Route: 048
     Dates: start: 20130123, end: 20130130

REACTIONS (6)
  - Abnormal behaviour [None]
  - Suicide attempt [None]
  - Brain injury [None]
  - Brain hypoxia [None]
  - Acute myocardial infarction [None]
  - Cardiomyopathy [None]
